FAERS Safety Report 6146981-X (Version None)
Quarter: 2009Q2

REPORT INFORMATION
  Report Type: 
  Country: None (occurrence: None)
  Receive Date: 20090407
  Receipt Date: 20090406
  Transmission Date: 20091009
  Serious: No
  Sender: FDA-Public Use
  Company Number: US-B.I. PHARMACEUTICALS,INC./RIDGEFIELD-2009-BP-04254BP

PATIENT
  Age: 71 Year
  Sex: Female

DRUGS (1)
  1. MELOXICAM [Suspect]
     Indication: RHEUMATOID ARTHRITIS
     Dosage: 7.5MG
     Route: 048
     Dates: start: 20090401, end: 20090405

REACTIONS (4)
  - DRUG INEFFECTIVE [None]
  - MUSCLE SPASMS [None]
  - PALPITATIONS [None]
  - TACHYCARDIA [None]
